FAERS Safety Report 7721429-X (Version None)
Quarter: 2011Q3

REPORT INFORMATION
  Report Type: 
  Country: None (occurrence: None)
  Receive Date: 20110831
  Receipt Date: 20110823
  Transmission Date: 20111222
  Serious: Yes (Hospitalization)
  Sender: FDA-Public Use
  Company Number: AT-PFIZER INC-2011190044

PATIENT
  Age: 71 Year
  Sex: Male
  Weight: 80 kg

DRUGS (13)
  1. CETUXIMAB [Suspect]
     Indication: COLORECTAL CANCER METASTATIC
     Dosage: 400 MG/M2, SINGLE
     Route: 042
     Dates: start: 20110526, end: 20110526
  2. CETUXIMAB [Suspect]
     Dosage: 250 MG/M2, ON D1 AND D8
     Route: 042
     Dates: start: 20110526
  3. ENOXAPARIN [Concomitant]
     Dosage: 120 MG, 1X/DAY
     Dates: start: 20110815, end: 20110815
  4. LIDOCAINE [Concomitant]
     Dosage: 10 MG, AS NEEDED
     Dates: start: 20110805
  5. FLUOROURACIL [Suspect]
     Indication: COLORECTAL CANCER METASTATIC
     Dosage: 400 MG/M2, SINGLE, EVERY 2 WEEKS
     Route: 040
     Dates: start: 20110526, end: 20110526
  6. FLUOROURACIL [Suspect]
     Dosage: 2400 MG/M2, ON D1-D2, EVERY 2 WEEKS
     Route: 042
     Dates: start: 20110526
  7. ENOXAPARIN [Concomitant]
     Dosage: 80 MG, 1X/DAY
     Dates: start: 20110812, end: 20110814
  8. ENALAPRIL [Concomitant]
     Dosage: 5 MG, 1X/DAY
     Dates: start: 20110812, end: 20110812
  9. SUCRALFAT [Concomitant]
     Dosage: 1 G, 2X/DAY
     Dates: start: 20110805
  10. LEUCOVORIN CALCIUM [Suspect]
     Indication: COLORECTAL CANCER METASTATIC
     Dosage: 400 MG/M2, ON D1, EVERY 2 WEEKS
     Route: 042
     Dates: start: 20110526
  11. NYSTATIN [Concomitant]
     Dosage: 4 TIMES A DAY
     Dates: start: 20110805
  12. IRINOTECAN HCL [Suspect]
     Indication: COLORECTAL CANCER METASTATIC
     Dosage: 180 MG/M2, ON D1, EVERY 2 WEEKS
     Route: 042
     Dates: start: 20110526
  13. HEXETIDIN [Concomitant]
     Dosage: 100 MG, 2X/DAY
     Dates: start: 20110805

REACTIONS (2)
  - PERITONSILLAR ABSCESS [None]
  - STOMATITIS [None]
